FAERS Safety Report 4564189-6 (Version None)
Quarter: 2005Q1

REPORT INFORMATION
  Report Type: 
  Country: None (occurrence: None)
  Receive Date: 20050128
  Receipt Date: 20040826
  Transmission Date: 20050727
  Serious: Yes (Hospitalization)
  Sender: FDA-Public Use
  Company Number: US-ROCHE-379042

PATIENT
  Age: 56 Year
  Sex: Male

DRUGS (19)
  1. DEMADEX [Suspect]
     Indication: DRUG USE FOR UNKNOWN INDICATION
     Route: 048
     Dates: start: 20040615
  2. DEMADEX [Suspect]
     Route: 048
     Dates: end: 20040415
  3. DEMADEX [Suspect]
     Dosage: DOSE LOWERED.
     Route: 048
  4. TORSEMIDE [Suspect]
     Indication: DRUG USE FOR UNKNOWN INDICATION
     Route: 048
     Dates: start: 20040415, end: 20040615
  5. COZAAR [Concomitant]
     Indication: DRUG USE FOR UNKNOWN INDICATION
     Route: 048
  6. DILTIAZEM [Concomitant]
     Indication: DRUG USE FOR UNKNOWN INDICATION
     Route: 048
  7. LIPITOR [Concomitant]
     Indication: DRUG USE FOR UNKNOWN INDICATION
     Route: 048
  8. NORVASC [Concomitant]
     Indication: DRUG USE FOR UNKNOWN INDICATION
     Route: 048
  9. ASPIRIN [Concomitant]
     Indication: DRUG USE FOR UNKNOWN INDICATION
     Route: 048
  10. INSULIN [Concomitant]
     Indication: DRUG USE FOR UNKNOWN INDICATION
     Dosage: REPORTED AS INSULIN 70/30
  11. MINOXIDIL [Concomitant]
     Indication: DRUG USE FOR UNKNOWN INDICATION
     Route: 048
  12. FOLIC ACID [Concomitant]
     Indication: DRUG USE FOR UNKNOWN INDICATION
     Dosage: REPORTED AS FOLATE.
  13. FLORINEF [Concomitant]
     Indication: DRUG USE FOR UNKNOWN INDICATION
     Dosage: REDUCED TO 0.05 MG EVERY OTHER DAY FROM 0.05 MG DAILY ON 21ST APRIL 2003.
  14. VITAMIN E [Concomitant]
     Indication: DRUG USE FOR UNKNOWN INDICATION
  15. IMDUR [Concomitant]
     Indication: DRUG USE FOR UNKNOWN INDICATION
  16. LOPRESSOR [Concomitant]
     Indication: DRUG USE FOR UNKNOWN INDICATION
  17. HYDRALAZINE HCL [Concomitant]
     Indication: DRUG USE FOR UNKNOWN INDICATION
  18. PROTONIX [Concomitant]
     Indication: DRUG USE FOR UNKNOWN INDICATION
  19. CLARITIN [Concomitant]
     Indication: DRUG USE FOR UNKNOWN INDICATION

REACTIONS (17)
  - ASTHENIA [None]
  - CARDIAC ARREST [None]
  - CARDIAC FAILURE CONGESTIVE [None]
  - CARDIAC MURMUR [None]
  - DEHYDRATION [None]
  - DRUG INEFFECTIVE [None]
  - HAEMATOCRIT ABNORMAL [None]
  - HAEMATOCRIT DECREASED [None]
  - HYPERKALAEMIA [None]
  - HYPOKALAEMIA [None]
  - MYALGIA [None]
  - MYOCARDIAL INFARCTION [None]
  - OEDEMA PERIPHERAL [None]
  - PHARMACEUTICAL PRODUCT COMPLAINT [None]
  - PULMONARY OEDEMA [None]
  - RENAL FAILURE [None]
  - TRANSFERRIN SATURATION DECREASED [None]
